FAERS Safety Report 7089934-X (Version None)
Quarter: 2010Q4

REPORT INFORMATION
  Report Type: 
  Country: None (occurrence: None)
  Receive Date: 20101108
  Receipt Date: 20101102
  Transmission Date: 20110411
  Serious: Yes (Other)
  Sender: FDA-Public Use
  Company Number: GB-BRISTOL-MYERS SQUIBB COMPANY-15367881

PATIENT
  Age: 73 Year
  Sex: Male

DRUGS (1)
  1. QUESTRAN [Suspect]
     Dosage: 1 DF = 1 SACHET

REACTIONS (1)
  - ARTHROPATHY [None]
